FAERS Safety Report 11849258 (Version 1)
Quarter: 2015Q4

REPORT INFORMATION
  Report Type: Spontaneous
  Country: JP (occurrence: JP)
  Receive Date: 20151218
  Receipt Date: 20151218
  Transmission Date: 20160305
  Serious: Yes (Other)
  Sender: FDA-Public Use
  Company Number: JP-ACTAVIS-2015-28053

PATIENT
  Age: 29 Year
  Sex: Male

DRUGS (1)
  1. URSO [Suspect]
     Active Substance: URSODIOL
     Indication: TRANSAMINASES INCREASED
     Dosage: 1 DF, SINGLE
     Route: 065

REACTIONS (2)
  - Angioedema [Recovered/Resolved]
  - Atrial fibrillation [Recovered/Resolved]
